FAERS Safety Report 8490660-0 (Version None)
Quarter: 2012Q3

REPORT INFORMATION
  Report Type: 
  Country: None (occurrence: None)
  Receive Date: 20120705
  Receipt Date: 20120627
  Transmission Date: 20120928
  Serious: Yes (Death, Hospitalization, Other)
  Sender: FDA-Public Use
  Company Number: DE-CELGENEUS-062-21880-12011500

PATIENT
  Age: 67 Year
  Sex: Female

DRUGS (5)
  1. MELPHALAN HYDROCHLORIDE [Concomitant]
     Route: 065
  2. REVLIMID [Suspect]
     Indication: MULTIPLE MYELOMA
     Route: 048
     Dates: start: 20100930, end: 20120108
  3. ADRIAMYCIN PFS [Concomitant]
     Route: 041
  4. DEXAMETHASONE SODIUM PHOSPHATE [Concomitant]
     Route: 048
     Dates: start: 20100930
  5. REVLIMID [Suspect]
     Route: 048

REACTIONS (6)
  - NEUTROPENIA [None]
  - PNEUMONIA [None]
  - DEVICE RELATED INFECTION [None]
  - MULTI-ORGAN FAILURE [None]
  - SEPTIC SHOCK [None]
  - ACUTE RESPIRATORY DISTRESS SYNDROME [None]
